FAERS Safety Report 7183894-9 (Version None)
Quarter: 2010Q4

REPORT INFORMATION
  Report Type: 
  Country: None (occurrence: None)
  Receive Date: 20101210
  Receipt Date: 20101130
  Transmission Date: 20110411
  Serious: Yes (Life-Threatening, Other)
  Sender: FDA-Public Use
  Company Number: 023087

PATIENT
  Age: 58 Year
  Sex: Male
  Weight: 95 kg

DRUGS (7)
  1. METHYLPHENIDATE HCL [Suspect]
     Indication: SOMNOLENCE
     Dosage: 15 MG QD ORAL
     Route: 048
     Dates: start: 20020101, end: 20101101
  2. ATENOLOL [Concomitant]
  3. SIMVSTATIN [Concomitant]
  4. AMITRIPTYLINE [Concomitant]
  5. AMLODIPINE [Concomitant]
  6. ASPIRIN [Concomitant]
  7. RAMIPRIL [Concomitant]

REACTIONS (3)
  - CARDIOPULMONARY BYPASS [None]
  - PULMONARY HYPERTENSION [None]
  - RIGHT VENTRICULAR FAILURE [None]
